FAERS Safety Report 6949318-9 (Version None)
Quarter: 2010Q3

REPORT INFORMATION
  Report Type: 
  Country: None (occurrence: None)
  Receive Date: 20100828
  Receipt Date: 20091221
  Transmission Date: 20110219
  Serious: No
  Sender: FDA-Public Use
  Company Number: US-ABBOTT-09P-163-0615561-00

PATIENT
  Sex: Female
  Weight: 60.382 kg

DRUGS (7)
  1. NIASPAN [Suspect]
     Indication: LIPOPROTEIN (A) ABNORMAL
     Dosage: NIGHTLY
     Dates: start: 20091220
  2. NIASPAN [Suspect]
     Indication: FAMILIAL RISK FACTOR
  3. NIASPAN [Suspect]
     Indication: BLOOD CHOLESTEROL ABNORMAL
  4. ASPIRIN [Concomitant]
     Indication: PRODUCT USED FOR UNKNOWN INDICATION
  5. LIPITOR [Concomitant]
     Indication: PRODUCT USED FOR UNKNOWN INDICATION
  6. THYROID MEDICATION PILL [Concomitant]
     Indication: PRODUCT USED FOR UNKNOWN INDICATION
  7. NATURAL HORMONE PILL [Concomitant]
     Indication: PRODUCT USED FOR UNKNOWN INDICATION

REACTIONS (2)
  - ABDOMINAL PAIN UPPER [None]
  - SKIN BURNING SENSATION [None]
